FAERS Safety Report 8800213 (Version 1)
Quarter: 2012Q4

REPORT INFORMATION
  Report Type: 
  Country: US (occurrence: US)
  Receive Date: 20120921
  Receipt Date: 20120921
  Transmission Date: 20130627
  Serious: Yes (Hospitalization)
  Sender: FDA-Public Use
  Company Number: US-JNJFOC-20120906996

PATIENT
  Age: 75 Year
  Sex: Male

DRUGS (11)
  1. ZYTIGA [Suspect]
     Indication: PRODUCT USED FOR UNKNOWN INDICATION
     Route: 048
     Dates: start: 201208, end: 20120912
  2. ASA [Concomitant]
     Route: 065
  3. FISH OIL [Concomitant]
     Route: 065
  4. GABAPENTIN [Concomitant]
     Route: 048
     Dates: start: 20120912, end: 201209
  5. IRON [Concomitant]
     Route: 065
  6. METOPROLOL [Concomitant]
     Route: 048
  7. OMEPRAZOLE [Concomitant]
     Route: 048
  8. PRAVASTATIN [Concomitant]
     Route: 065
     Dates: start: 20120912, end: 201209
  9. MEN MULTIVITAMINS [Concomitant]
     Route: 065
  10. SYNTHROID [Concomitant]
     Route: 065
  11. VITAMIN B W/VITAMIN C/VITAMIN E [Concomitant]
     Route: 065

REACTIONS (5)
  - Blood potassium decreased [Not Recovered/Not Resolved]
  - Headache [Not Recovered/Not Resolved]
  - Fatigue [Not Recovered/Not Resolved]
  - Oedema peripheral [Not Recovered/Not Resolved]
  - Vomiting [Not Recovered/Not Resolved]
